FAERS Safety Report 4413888-5 (Version None)
Quarter: 2004Q3

REPORT INFORMATION
  Report Type: 
  Country: None (occurrence: None)
  Receive Date: 20040728
  Receipt Date: 20040719
  Transmission Date: 20050211
  Serious: Yes (Hospitalization)
  Sender: FDA-Public Use
  Company Number: STA-AE-04-MTX-315

PATIENT
  Age: 65 Year
  Sex: Male

DRUGS (1)
  1. METHOTREXATE [Suspect]
     Indication: RHEUMATOID ARTHRITIS
     Dosage: LOW DOSE, ORAL
     Route: 048
     Dates: start: 20010101

REACTIONS (2)
  - DIFFUSE LARGE B-CELL LYMPHOMA [None]
  - SPLENOMEGALY [None]
